FAERS Safety Report 9354402 (Version 5)
Quarter: 2013Q4

REPORT INFORMATION
  Report Type: Spontaneous
  Country: US (occurrence: US)
  Receive Date: 20130618
  Receipt Date: 20131224
  Transmission Date: 20140711
  Serious: Yes (Hospitalization, Other)
  Sender: FDA-Public Use
  Company Number: US-009507513-1306USA006655

PATIENT
  Sex: Male
  Weight: 114.92 kg

DRUGS (5)
  1. FOSAMAX [Suspect]
     Indication: OSTEOPENIA
     Dosage: 70 MG, UNK
     Route: 048
     Dates: start: 20051222, end: 20110601
  2. FOSAMAX [Suspect]
     Indication: OSTEOPOROSIS
  3. ALENDRONATE SODIUM [Suspect]
     Indication: OSTEOPENIA
     Dosage: 70 MG, QW
     Route: 048
     Dates: start: 20051222, end: 2012
  4. ALENDRONATE SODIUM [Suspect]
     Indication: OSTEOPOROSIS
  5. CALCIUM (UNSPECIFIED) [Concomitant]

REACTIONS (35)
  - Ankle fracture [Unknown]
  - Hypoacusis [Unknown]
  - Osteonecrosis of jaw [Unknown]
  - Dental prosthesis placement [Unknown]
  - Artificial crown procedure [Unknown]
  - Tooth abscess [Unknown]
  - Endodontic procedure [Unknown]
  - Hypertension [Unknown]
  - Hypercholesterolaemia [Unknown]
  - Prostatomegaly [Unknown]
  - Bladder disorder [Unknown]
  - Unevaluable event [Unknown]
  - Gingival pain [Unknown]
  - Gingival recession [Unknown]
  - Toothache [Recovered/Resolved]
  - Poor personal hygiene [Unknown]
  - Dry mouth [Unknown]
  - Dental caries [Unknown]
  - Tooth disorder [Unknown]
  - Periodontitis [Not Recovered/Not Resolved]
  - Adverse event [Unknown]
  - Intraocular lens implant [Unknown]
  - Presbyopia [Unknown]
  - Blepharitis [Unknown]
  - Vitreous floaters [Unknown]
  - Hypercalcaemia [Unknown]
  - Organic erectile dysfunction [Unknown]
  - Chronic obstructive pulmonary disease [Not Recovered/Not Resolved]
  - Hypoxia [Unknown]
  - Blood glucose increased [Unknown]
  - Rotator cuff syndrome [Unknown]
  - Metabolic syndrome [Unknown]
  - Irritable bowel syndrome [Unknown]
  - Pain [Unknown]
  - Constipation [Unknown]
